FAERS Safety Report 4353859-0 (Version None)
Quarter: 2004Q2

REPORT INFORMATION
  Report Type: 
  Country: None (occurrence: None)
  Receive Date: 20040503
  Receipt Date: 20040423
  Transmission Date: 20050107
  Serious: Yes (Disabling)
  Sender: FDA-Public Use
  Company Number: 200410147BYL

PATIENT
  Age: 70 Year
  Sex: Male
  Weight: 44 kg

DRUGS (11)
  1. CIPROFLOXACIN [Suspect]
     Indication: SEPSIS
     Dosage: 300 MG, BID, INTRAVENOUS DRIP
     Route: 041
     Dates: start: 20020301, end: 20020302
  2. UNKNOWN (ANTINEOPLASTIC AGENTS) [Suspect]
     Indication: CARCINOMA
  3. TOBRACIN [Concomitant]
  4. VANCOMYCIN [Concomitant]
  5. MEROPEN [Concomitant]
  6. DIFLUCAN [Concomitant]
  7. BAKTAR [Concomitant]
  8. ZADITEN [Concomitant]
  9. POLARAMINE [Concomitant]
  10. ATARAX [Concomitant]
  11. RIVOTRIL [Concomitant]

REACTIONS (1)
  - PURPURA [None]
